FAERS Safety Report 9048648 (Version 2)
Quarter: 2013Q2

REPORT INFORMATION
  Report Type: Spontaneous
  Country: US (occurrence: None)
  Receive Date: 20120525
  Receipt Date: 20120827
  Transmission Date: 20140414
  Serious: No
  Sender: FDA-Public Use
  Company Number: 350128

PATIENT
  Age: 78 None
  Sex: Female

DRUGS (2)
  1. VICTOZA [Suspect]
     Indication: TYPE 2 DIABETES MELLITUS
     Route: 058
  2. GLIMEPIRIDE (GLIMEPIRIDE) [Suspect]

REACTIONS (5)
  - Increased appetite [None]
  - Weight increased [None]
  - Decreased appetite [None]
  - Blood glucose decreased [None]
  - Blood glucose increased [None]
